FAERS Safety Report 13343054 (Version 2)
Quarter: 2017Q1

REPORT INFORMATION
  Report Type: Spontaneous
  Country: TH (occurrence: TH)
  Receive Date: 20170316
  Receipt Date: 20170320
  Transmission Date: 20170428
  Serious: Yes (Other)
  Sender: FDA-Public Use
  Company Number: ALCN2017TH001918

PATIENT

DRUGS (4)
  1. VIGAMOX [Suspect]
     Active Substance: MOXIFLOXACIN HYDROCHLORIDE
     Indication: POSTOPERATIVE CARE
     Route: 047
  2. ATROPINE SULFATE. [Suspect]
     Active Substance: ATROPINE SULFATE
     Indication: POSTOPERATIVE CARE
     Route: 047
  3. MYDRIACYL [Suspect]
     Active Substance: TROPICAMIDE
     Indication: POSTOPERATIVE CARE
     Route: 047
  4. TOBREX [Suspect]
     Active Substance: TOBRAMYCIN
     Indication: POSTOPERATIVE CARE
     Route: 047

REACTIONS (4)
  - Posterior capsule opacification [Unknown]
  - Glaucoma [Unknown]
  - Amblyopia [Unknown]
  - Strabismus [Unknown]
